FAERS Safety Report 9580476 (Version 2)
Quarter: 2013Q4

REPORT INFORMATION
  Report Type: Spontaneous
  Country: JP (occurrence: JP)
  Receive Date: 20131002
  Receipt Date: 20131112
  Transmission Date: 20140711
  Serious: Yes (Hospitalization)
  Sender: FDA-Public Use
  Company Number: JP-PFIZER INC-2013278807

PATIENT
  Age: 6 Decade
  Sex: Male

DRUGS (9)
  1. LEVOFLOXACIN [Suspect]
     Indication: PULMONARY TUBERCULOSIS
     Dosage: UNK
  2. RIFAMPICIN [Suspect]
     Indication: PULMONARY TUBERCULOSIS
     Dosage: UNK
  3. SULTAMICILLIN TOSILATE HYDRATE [Suspect]
     Indication: PULMONARY TUBERCULOSIS
     Dosage: UNK
  4. PYRAZINAMIDE [Suspect]
     Indication: PULMONARY TUBERCULOSIS
     Dosage: UNK
  5. ISONIAZID [Suspect]
     Indication: PULMONARY TUBERCULOSIS
     Dosage: UNK
  6. ETHAMBUTOL [Suspect]
     Indication: PULMONARY TUBERCULOSIS
     Dosage: UNK
  7. STREPTOMYCIN [Suspect]
     Indication: PULMONARY TUBERCULOSIS
     Dosage: UNK
  8. ETHIONAMIDE [Suspect]
     Indication: PULMONARY TUBERCULOSIS
     Dosage: UNK
  9. CYCLOSERINE [Suspect]
     Indication: PULMONARY TUBERCULOSIS
     Dosage: UNK

REACTIONS (2)
  - Drug ineffective [Unknown]
  - Drug resistance [Unknown]
